FAERS Safety Report 15329154 (Version 3)
Quarter: 2018Q4

REPORT INFORMATION
  Report Type: Spontaneous
  Country: US (occurrence: US)
  Receive Date: 20180829
  Receipt Date: 20181023
  Transmission Date: 20190204
  Serious: Yes (Death, Life-Threatening, Hospitalization, Other)
  Sender: FDA-Public Use
  Company Number: US-AMGEN-USASP2018116975

PATIENT
  Age: 86 Year
  Sex: Male
  Weight: 83 kg

DRUGS (11)
  1. PLAVIX [Concomitant]
     Active Substance: CLOPIDOGREL BISULFATE
     Dosage: UNK
  2. METOPROLOL. [Concomitant]
     Active Substance: METOPROLOL
     Dosage: UNK
  3. NPLATE [Suspect]
     Active Substance: ROMIPLOSTIM
     Indication: IMMUNE THROMBOCYTOPENIC PURPURA
     Dosage: 500 MUG, UNK
     Route: 058
     Dates: start: 2015
  4. NPLATE [Suspect]
     Active Substance: ROMIPLOSTIM
     Dosage: 190 MUG, UNK
     Route: 065
     Dates: start: 20180710
  5. NPLATE [Suspect]
     Active Substance: ROMIPLOSTIM
     Dosage: 190 MUG, UNK
     Route: 058
     Dates: start: 20180724
  6. NPLATE [Suspect]
     Active Substance: ROMIPLOSTIM
     Dosage: 108.9 MUG, UNK
     Route: 065
     Dates: start: 20180703
  7. AMLODIPINE [Concomitant]
     Active Substance: AMLODIPINE BESYLATE
     Dosage: UNK
  8. NPLATE [Suspect]
     Active Substance: ROMIPLOSTIM
     Dosage: 108.9 MUG, UNK
     Route: 065
     Dates: start: 20180626
  9. NPLATE [Suspect]
     Active Substance: ROMIPLOSTIM
     Dosage: 190 MUG, UNK
     Route: 065
     Dates: start: 20180717
  10. HYDRALAZINE [Concomitant]
     Active Substance: HYDRALAZINE HYDROCHLORIDE
     Dosage: UNK
  11. ZOCOR [Concomitant]
     Active Substance: SIMVASTATIN
     Dosage: UNK

REACTIONS (3)
  - Respiratory arrest [Fatal]
  - Cardiac arrest [Fatal]
  - Pulmonary embolism [Fatal]

NARRATIVE: CASE EVENT DATE: 20180731
